FAERS Safety Report 6575485-5 (Version None)
Quarter: 2010Q1

REPORT INFORMATION
  Report Type: 
  Country: None (occurrence: None)
  Receive Date: 20100209
  Receipt Date: 20100129
  Transmission Date: 20100710
  Serious: Yes (Hospitalization)
  Sender: FDA-Public Use
  Company Number: JP-PFIZER INC-2010015481

PATIENT
  Age: 76 Year
  Sex: Female

DRUGS (8)
  1. CELECOX [Suspect]
     Indication: OSTEOARTHRITIS
     Dosage: 200 MG, UNKOWN/D
     Route: 048
     Dates: end: 20091207
  2. BLOPRESS [Concomitant]
     Dosage: UNK
     Route: 048
  3. HIBON [Concomitant]
     Dosage: UNK
     Route: 048
  4. MUCOSOLVAN (LASOLVAN) [Concomitant]
     Dosage: UNK
     Route: 048
  5. SPIRIVA [Concomitant]
     Dosage: UNK
     Route: 055
  6. ONE-ALPHA [Concomitant]
     Dosage: UNK
     Route: 048
     Dates: start: 20091125, end: 20091207
  7. ALDIOXA [Concomitant]
     Dosage: UNK
     Dates: end: 20091207
  8. ALENDRONATE SODIUM [Concomitant]
     Dosage: UNK
     Route: 048
     Dates: end: 20091207

REACTIONS (2)
  - LARYNGEAL OEDEMA [None]
  - RASH [None]
